FAERS Safety Report 20136142 (Version 8)
Quarter: 2022Q1

REPORT INFORMATION
  Report Type: Report from Study
  Country: BR (occurrence: BR)
  Receive Date: 20211201
  Receipt Date: 20220328
  Transmission Date: 20220423
  Serious: Yes (Other)
  Sender: FDA-Public Use
  Company Number: BR-NOVARTISPH-NVSC2021BR265853

PATIENT
  Age: 56 Year
  Sex: Female
  Weight: 47 kg

DRUGS (9)
  1. PIQRAY [Suspect]
     Active Substance: ALPELISIB
     Indication: Breast cancer
     Dosage: 300 MG, QD (2 X150 MG PILLS)
     Route: 065
     Dates: start: 20210902, end: 20211008
  2. PIQRAY [Suspect]
     Active Substance: ALPELISIB
     Dosage: 250 MG, QD
     Route: 065
     Dates: start: 20211109
  3. PIQRAY [Suspect]
     Active Substance: ALPELISIB
     Dosage: 300 MG
     Route: 065
     Dates: start: 20210909
  4. PIQRAY [Suspect]
     Active Substance: ALPELISIB
     Dosage: 250 MG, QD
     Route: 065
  5. PIQRAY [Suspect]
     Active Substance: ALPELISIB
     Dosage: 300 MG, QD
     Route: 065
     Dates: start: 20210902, end: 202110
  6. PIQRAY [Suspect]
     Active Substance: ALPELISIB
     Dosage: UNK
     Route: 065
  7. FULVESTRANT [Suspect]
     Active Substance: FULVESTRANT
     Indication: Product used for unknown indication
     Dosage: UNK UNK, QMO (28 IN 28 DAYS)
     Route: 065
  8. FASLODEX [Concomitant]
     Active Substance: FULVESTRANT
     Indication: Product used for unknown indication
     Dosage: UNK
     Route: 065
     Dates: start: 20210830
  9. FASLODEX [Concomitant]
     Active Substance: FULVESTRANT
     Dosage: UNK (ONCE A MONTH)
     Route: 065

REACTIONS (45)
  - Dysentery [Recovered/Resolved]
  - Lung cancer metastatic [Not Recovered/Not Resolved]
  - Second primary malignancy [Unknown]
  - Blood glucose abnormal [Unknown]
  - Feeling abnormal [Not Recovered/Not Resolved]
  - Skin disorder [Not Recovered/Not Resolved]
  - Feeding disorder [Unknown]
  - Arthropathy [Not Recovered/Not Resolved]
  - Crepitations [Unknown]
  - Skin exfoliation [Unknown]
  - Paraesthesia [Not Recovered/Not Resolved]
  - Liver disorder [Recovered/Resolved]
  - Weight increased [Unknown]
  - Hypotonia [Not Recovered/Not Resolved]
  - Weight decreased [Not Recovered/Not Resolved]
  - Diarrhoea [Recovered/Resolved]
  - Dry skin [Not Recovered/Not Resolved]
  - Rash [Unknown]
  - Diarrhoea [Unknown]
  - Mucosal dryness [Not Recovered/Not Resolved]
  - Aphthous ulcer [Recovered/Resolved]
  - Pruritus [Unknown]
  - Blood glucose increased [Recovered/Resolved]
  - Mucosal inflammation [Unknown]
  - Hepatic enzyme abnormal [Recovering/Resolving]
  - Malaise [Unknown]
  - Nutritional condition abnormal [Unknown]
  - Liver function test abnormal [Unknown]
  - Skin discolouration [Unknown]
  - Glossodynia [Unknown]
  - Gingival erythema [Unknown]
  - Bradykinesia [Unknown]
  - Hypotension [Unknown]
  - Gastrointestinal disorder [Unknown]
  - Muscle atrophy [Unknown]
  - Blood glucose increased [Unknown]
  - Erythema [Unknown]
  - Gingival pain [Unknown]
  - Fatigue [Unknown]
  - Abdominal pain upper [Unknown]
  - Myalgia [Unknown]
  - Dyspnoea [Not Recovered/Not Resolved]
  - Arthralgia [Not Recovered/Not Resolved]
  - Posture abnormal [Not Recovered/Not Resolved]
  - Lung disorder [Not Recovered/Not Resolved]

NARRATIVE: CASE EVENT DATE: 20210901
